FAERS Safety Report 7091488-9 (Version None)
Quarter: 2010Q4

REPORT INFORMATION
  Report Type: 
  Country: None (occurrence: None)
  Receive Date: 20101109
  Receipt Date: 20101104
  Transmission Date: 20110411
  Serious: Yes (Hospitalization, Congenital Anomaly, Other)
  Sender: FDA-Public Use
  Company Number: US-PFIZER INC-2010128154

PATIENT
  Sex: Female

DRUGS (3)
  1. ZOLOFT [Suspect]
     Dosage: 50 MG, 1X/DAY
     Route: 064
  2. KEFLEX [Concomitant]
     Indication: UPPER RESPIRATORY TRACT INFECTION
     Dosage: 500 MG, TWO CAPSULE
     Route: 064
     Dates: start: 20060817
  3. TYLENOL [Concomitant]
     Indication: ABDOMINAL PAIN LOWER
     Dosage: UNK
     Route: 064
     Dates: start: 20060602

REACTIONS (6)
  - CLEFT PALATE [None]
  - DRUG EXPOSURE DURING PREGNANCY [None]
  - EAR PAIN [None]
  - EUSTACHIAN TUBE DYSFUNCTION [None]
  - HEARING IMPAIRED [None]
  - SPEECH DISORDER DEVELOPMENTAL [None]
